FAERS Safety Report 25631700 (Version 1)
Quarter: 2025Q3

REPORT INFORMATION
  Report Type: Spontaneous
  Country: CA (occurrence: CA)
  Receive Date: 20250801
  Receipt Date: 20250801
  Transmission Date: 20251021
  Serious: Yes (Death, Other)
  Sender: ACCORD
  Company Number: None

PATIENT

DRUGS (6)
  1. HYDROXYCHLOROQUINE [Suspect]
     Active Substance: HYDROXYCHLOROQUINE
     Route: 064
  2. ASPIRIN [Suspect]
     Active Substance: ASPIRIN
     Route: 064
  3. AZATHIOPRINE SODIUM [Suspect]
     Active Substance: AZATHIOPRINE SODIUM
     Route: 064
  4. HUMAN IMMUNOGLOBULIN G [Suspect]
     Active Substance: HUMAN IMMUNOGLOBULIN G
     Route: 064
  5. INSULIN ASPART [Suspect]
     Active Substance: INSULIN ASPART
     Route: 064
  6. PREDNISONE ACETATE [Suspect]
     Active Substance: PREDNISONE ACETATE
     Route: 064

REACTIONS (6)
  - Foetal exposure during pregnancy [Fatal]
  - Premature baby [Fatal]
  - Premature separation of placenta [Fatal]
  - Foetal growth restriction [Fatal]
  - Shock haemorrhagic [Fatal]
  - Foetal death [Fatal]
